FAERS Safety Report 4477777-2 (Version None)
Quarter: 2004Q4

REPORT INFORMATION
  Report Type: 
  Country: None (occurrence: None)
  Receive Date: 20041014
  Receipt Date: 20041001
  Transmission Date: 20050328
  Serious: Yes (Hospitalization, Other)
  Sender: FDA-Public Use
  Company Number: 2004234611US

PATIENT
  Sex: Female
  Weight: 54.4 kg

DRUGS (4)
  1. CELEBREX [Suspect]
  2. NORVASC [Concomitant]
  3. PLAVIX [Concomitant]
  4. METOPROLOL [Concomitant]

REACTIONS (3)
  - HAEMATEMESIS [None]
  - HAEMORRHAGE [None]
  - HEART RATE INCREASED [None]
